FAERS Safety Report 7129334-7 (Version None)
Quarter: 2010Q4

REPORT INFORMATION
  Report Type: 
  Country: None (occurrence: None)
  Receive Date: 20101130
  Receipt Date: 20101119
  Transmission Date: 20110411
  Serious: Yes (Other)
  Sender: FDA-Public Use
  Company Number: US-WATSON-2010-12180

PATIENT
  Sex: Female
  Weight: 102 kg

DRUGS (13)
  1. PREDNISONE [Suspect]
     Indication: MULTIPLE SCLEROSIS RELAPSE
     Dosage: 20-60 MG 1-3 X DAY
     Route: 048
     Dates: start: 20100501, end: 20100801
  2. SOLU-MEDROL [Suspect]
     Indication: MULTIPLE SCLEROSIS RELAPSE
     Dosage: X 3 DAYS
     Route: 042
     Dates: start: 20100101, end: 20100101
  3. COPAXONE [Suspect]
     Indication: MULTIPLE SCLEROSIS
     Dosage: 20 MG, UNKNOWN
     Route: 058
     Dates: start: 20050125
  4. CALCIUM CITRATE [Concomitant]
     Indication: MEDICAL DIET
     Dosage: 600 MG, BID
     Route: 048
  5. VITAMIN B12                        /00056201/ [Concomitant]
     Indication: PAIN
     Route: 065
  6. GABAPENTIN [Concomitant]
     Indication: MULTIPLE SCLEROSIS
     Dosage: 1200 MG, BID
  7. TRAZODONE [Concomitant]
     Indication: SLEEP DISORDER
     Dosage: UNK
  8. SIMVASTATIN [Concomitant]
     Indication: PRODUCT USED FOR UNKNOWN INDICATION
     Dosage: 40 MG, DAILY
     Route: 048
  9. METFORMIN [Concomitant]
     Indication: DIABETES MELLITUS
     Dosage: 750 MG, BID
     Route: 048
  10. PRISTIQ [Concomitant]
     Indication: DEPRESSION
  11. NAPROXEN [Concomitant]
     Indication: PRODUCT USED FOR UNKNOWN INDICATION
  12. LEVSIN [Concomitant]
     Indication: PRODUCT USED FOR UNKNOWN INDICATION
  13. VITAMIN A [Concomitant]
     Indication: PRODUCT USED FOR UNKNOWN INDICATION

REACTIONS (8)
  - ALOPECIA [None]
  - BLOOD GLUCOSE INCREASED [None]
  - DRUG INEFFECTIVE [None]
  - MADAROSIS [None]
  - MULTIPLE SCLEROSIS RELAPSE [None]
  - RASH [None]
  - SKIN DISORDER [None]
  - URINARY INCONTINENCE [None]
